FAERS Safety Report 9135717 (Version 1)
Quarter: 2013Q1

REPORT INFORMATION
  Report Type: Spontaneous
  Country: IT (occurrence: IT)
  Receive Date: 20130304
  Receipt Date: 20130304
  Transmission Date: 20140127
  Serious: Yes (Other)
  Sender: FDA-Public Use
  Company Number: IT-MYLANLABS-2013S1003997

PATIENT
  Age: 77 Year
  Sex: Female

DRUGS (3)
  1. CIPROFLOXACIN [Suspect]
     Indication: SEPSIS
     Route: 042
     Dates: start: 20130111, end: 20130114
  2. AMOXICILLIN+CLAVULANIC ACID [Suspect]
     Indication: SEPSIS
     Route: 042
     Dates: start: 20121223, end: 20130114
  3. RIFAMPICIN [Concomitant]
     Indication: SEPSIS
     Dates: start: 20121223, end: 20130113

REACTIONS (2)
  - Hypercreatininaemia [Recovered/Resolved]
  - Urine output decreased [Recovered/Resolved]
